FAERS Safety Report 6263793-7 (Version None)
Quarter: 2009Q3

REPORT INFORMATION
  Report Type: 
  Country: None (occurrence: None)
  Receive Date: 20090710
  Receipt Date: 20090708
  Transmission Date: 20100115
  Serious: Yes (Death)
  Sender: FDA-Public Use
  Company Number: PHHY2009BR27783

PATIENT
  Sex: Female

DRUGS (1)
  1. DIOVAN HCT [Suspect]
     Indication: HYPERTENSION
     Dosage: 1 DF (80/12.5 MG) IN THE MORNING AND A HALF DF (80/12.5 MG) AT NIGHT
     Route: 048
     Dates: start: 20070701, end: 20090418

REACTIONS (1)
  - ACUTE MYOCARDIAL INFARCTION [None]
